FAERS Safety Report 21879026 (Version 2)
Quarter: 2024Q1

REPORT INFORMATION
  Report Type: Spontaneous
  Country: US (occurrence: US)
  Receive Date: 20230118
  Receipt Date: 20240112
  Transmission Date: 20240409
  Serious: Yes (Death, Other)
  Sender: FDA-Public Use
  Company Number: US-AMGEN-USASP2023005591

PATIENT

DRUGS (7)
  1. RITUXIMAB [Suspect]
     Active Substance: RITUXIMAB
     Indication: Diffuse large B-cell lymphoma
     Dosage: 375 MILLIGRAM/SQ. METER (DAYS 1, 6) (4 CYCLES)
     Route: 065
  2. RITUXIMAB [Suspect]
     Active Substance: RITUXIMAB
     Dosage: 6 CYCLES
     Route: 065
  3. METHOTREXATE [Concomitant]
     Active Substance: METHOTREXATE
     Indication: Diffuse large B-cell lymphoma
     Dosage: 3.5 GRAM PER SQUARE METRE (DAY 2)
  4. CYTARABINE [Concomitant]
     Active Substance: CYTARABINE
     Indication: Diffuse large B-cell lymphoma
     Dosage: 2 GRAM PER SQUARE METRE, Q12H (DAYS 3, 4)
  5. THIOTEPA [Concomitant]
     Active Substance: THIOTEPA
     Indication: Diffuse large B-cell lymphoma
     Dosage: 30 MILLIGRAM/SQ. METER (DAY 5)
  6. THIOTEPA [Concomitant]
     Active Substance: THIOTEPA
     Dosage: 5 MILLIGRAM/KILOGRAM
  7. CARMUSTINE [Concomitant]
     Active Substance: CARMUSTINE
     Indication: Diffuse large B-cell lymphoma
     Dosage: 400 MILLIGRAM/SQ. METER

REACTIONS (8)
  - Thrombophlebitis septic [Fatal]
  - Cardiac arrest [Fatal]
  - Febrile neutropenia [Fatal]
  - Pneumonia fungal [Fatal]
  - Diffuse large B-cell lymphoma [Unknown]
  - Leukoencephalopathy [Unknown]
  - Blood stem cell harvest failure [Unknown]
  - Toxicity to various agents [Unknown]
